FAERS Safety Report 18089195 (Version 3)
Quarter: 2020Q4

REPORT INFORMATION
  Report Type: Report from Study
  Country: US (occurrence: US)
  Receive Date: 20200729
  Receipt Date: 20201022
  Transmission Date: 20210113
  Serious: Yes (Other)
  Sender: FDA-Public Use
  Company Number: US-MALLINCKRODT-T202002631

PATIENT
  Age: 57 Year
  Sex: Female
  Weight: 116 kg

DRUGS (1)
  1. REPOSITORY CORTICOTROPIN INJECTION [Suspect]
     Active Substance: CORTICOTROPIN
     Indication: NEPHROTIC SYNDROME
     Dosage: 80 UNITS, TWICE WEEKLY
     Route: 058
     Dates: start: 20200601

REACTIONS (12)
  - Abdominal pain upper [Recovered/Resolved]
  - Blood uric acid increased [Unknown]
  - Gout [Not Recovered/Not Resolved]
  - Asthma [Recovering/Resolving]
  - Bronchitis [Recovering/Resolving]
  - Nausea [Recovered/Resolved]
  - Sinusitis [Recovering/Resolving]
  - Sleep apnoea syndrome [Not Recovered/Not Resolved]
  - Diabetes mellitus [Unknown]
  - Therapeutic product effect incomplete [Not Recovered/Not Resolved]
  - Fatigue [Not Recovered/Not Resolved]
  - Protein total abnormal [Unknown]

NARRATIVE: CASE EVENT DATE: 2020
